FAERS Safety Report 18717907 (Version 1)
Quarter: 2021Q1

REPORT INFORMATION
  Report Type: Spontaneous
  Country: NL (occurrence: NL)
  Receive Date: 20210108
  Receipt Date: 20210108
  Transmission Date: 20210419
  Serious: Yes (Hospitalization, Other)
  Sender: FDA-Public Use
  Company Number: NL-AMGEN-NLDSP2021001109

PATIENT
  Age: 65 Year
  Sex: Female

DRUGS (3)
  1. BEVACIZUMAB. [Suspect]
     Active Substance: BEVACIZUMAB
     Indication: NON-SMALL CELL LUNG CANCER
     Dosage: ON 19/JUN/2019, SHE RECEIVED THE MOST RECENT DOSE OF BEVACIZUMAB (1014 MG) PRIOR TO SERIOUS ADVERSE
     Route: 042
     Dates: start: 20190214
  2. TAXOL [Suspect]
     Active Substance: PACLITAXEL
     Indication: NON-SMALL CELL LUNG CANCER
     Dosage: ON 18/APR/2019, SHE RECEIVED THE MOST RECENT DOSE OF PACLITAXEL (342 MG) PRIOR TO SERIOUS ADVERSE EV
     Route: 042
     Dates: start: 20190214
  3. CARBOPLATIN. [Suspect]
     Active Substance: CARBOPLATIN
     Indication: NON-SMALL CELL LUNG CANCER
     Dosage: AUC 6ON 18/APR/2019, SHE RECEIVED THE MOST RECENT DOSE OF CARBOPLATIN (657 MG) PRIOR TO SERIOUS ADVE
     Route: 042
     Dates: start: 20190214

REACTIONS (1)
  - Appendicitis perforated [Recovering/Resolving]

NARRATIVE: CASE EVENT DATE: 20190701
